FAERS Safety Report 5141518-6 (Version None)
Quarter: 2006Q4

REPORT INFORMATION
  Report Type: 
  Country: None (occurrence: None)
  Receive Date: 20061101
  Receipt Date: 20061017
  Transmission Date: 20070319
  Serious: Yes (Other)
  Sender: FDA-Public Use
  Company Number: US-ELI_LILLY_AND_COMPANY-US200610003650

PATIENT
  Age: 19 Year
  Sex: Female

DRUGS (4)
  1. CYMBALTA [Suspect]
     Indication: FIBROMYALGIA
     Dosage: 60 MG, UNK
     Dates: start: 20060627, end: 20060810
  2. CYMBALTA [Suspect]
     Dosage: 30 MG, UNK
     Dates: start: 20060810, end: 20060821
  3. MOBIC [Concomitant]
     Dosage: 7.5 UNK, UNK
  4. ZANAFLEX [Concomitant]
     Dosage: 4 UNK, UNK

REACTIONS (3)
  - FATIGUE [None]
  - MYALGIA [None]
  - RECTAL HAEMORRHAGE [None]
